FAERS Safety Report 5244263-1 (Version None)
Quarter: 2007Q1

REPORT INFORMATION
  Report Type: 
  Country: None (occurrence: None)
  Receive Date: 20070222
  Receipt Date: 20070213
  Transmission Date: 20070707
  Serious: Yes (Other)
  Sender: FDA-Public Use
  Company Number: FR-JNJFOC-20070201144

PATIENT
  Age: 59 Year
  Sex: Female

DRUGS (1)
  1. REMICADE [Suspect]
     Indication: GASTROINTESTINAL DISORDER

REACTIONS (1)
  - INTESTINAL T-CELL LYMPHOMA [None]
